FAERS Safety Report 6252095-0 (Version None)
Quarter: 2009Q2

REPORT INFORMATION
  Report Type: 
  Country: None (occurrence: None)
  Receive Date: 20090629
  Receipt Date: 20090616
  Transmission Date: 20091009
  Serious: Yes (Other)
  Sender: FDA-Public Use
  Company Number: 2009AL004067

PATIENT
  Age: 50 Year
  Sex: Female

DRUGS (2)
  1. FLUOXETINE [Suspect]
     Indication: DEPRESSION
     Dosage: 20 MG;QD;PO
     Route: 048
     Dates: start: 20080227
  2. NORINYL 1+35 28-DAY [Concomitant]

REACTIONS (2)
  - DEAFNESS BILATERAL [None]
  - TINNITUS [None]
